FAERS Safety Report 8118858-1 (Version None)
Quarter: 2012Q1

REPORT INFORMATION
  Report Type: 
  Country: None (occurrence: None)
  Receive Date: 20120207
  Receipt Date: 20120131
  Transmission Date: 20120608
  Serious: Yes (Death, Hospitalization)
  Sender: FDA-Public Use
  Company Number: US-ELI_LILLY_AND_COMPANY-US201201003099

PATIENT
  Sex: Female
  Weight: 60.408 kg

DRUGS (9)
  1. VITAMIN B-12 [Concomitant]
     Dosage: 1000 UG, UNK
     Route: 042
     Dates: start: 20111205
  2. ZOLOFT [Concomitant]
  3. TRAZODONE HCL [Concomitant]
  4. ALIMTA [Suspect]
     Indication: LUNG NEOPLASM MALIGNANT
     Dosage: 500 MG/M2, EVERY 3WEEKS
     Route: 042
     Dates: start: 20111214
  5. ATIVAN [Concomitant]
  6. FOLIC ACID [Concomitant]
     Dosage: 1 MG, UNK
  7. DECADRON [Concomitant]
  8. LIPITOR [Concomitant]
  9. COMPAZINE [Concomitant]

REACTIONS (3)
  - METASTASES TO SPINE [None]
  - NEOPLASM MALIGNANT [None]
  - NO THERAPEUTIC RESPONSE [None]
